FAERS Safety Report 14465842 (Version 1)
Quarter: 2018Q1

REPORT INFORMATION
  Report Type: Spontaneous
  Country: US (occurrence: US)
  Receive Date: 20180131
  Receipt Date: 20180131
  Transmission Date: 20180509
  Serious: Yes (Life-Threatening, Hospitalization, Other)
  Sender: FDA-Public Use
  Company Number: US-AXELLIA-001340

PATIENT
  Age: 67 Year
  Sex: Male

DRUGS (1)
  1. VANCOMYCIN [Suspect]
     Active Substance: VANCOMYCIN
     Indication: STAPHYLOCOCCAL INFECTION

REACTIONS (10)
  - Multiple organ dysfunction syndrome [Recovering/Resolving]
  - Drug reaction with eosinophilia and systemic symptoms [Recovering/Resolving]
  - Hypercapnia [Recovering/Resolving]
  - Respiratory failure [Recovering/Resolving]
  - Oliguria [Recovering/Resolving]
  - Blood urea increased [Recovering/Resolving]
  - Transaminases increased [Recovering/Resolving]
  - Drug level increased [Recovering/Resolving]
  - Hypotension [Recovering/Resolving]
  - Blood creatinine increased [Recovering/Resolving]
